FAERS Safety Report 6770057 (Version 4)
Quarter: 2013Q2

REPORT INFORMATION
  Report Type: Spontaneous
  Country: US (occurrence: US)
  Receive Date: 20080924
  Receipt Date: 20130510
  Transmission Date: 20140414
  Serious: Yes (Hospitalization, Other)
  Sender: FDA-Public Use
  Company Number: US-AMGEN-QUU307764

PATIENT
  Age: 36 Year
  Sex: Female

DRUGS (8)
  1. ENBREL [Suspect]
     Indication: PSORIATIC ARTHROPATHY
     Dosage: 50 MG, QWK
     Route: 058
     Dates: start: 20030301
  2. PRENATAL VITAMINS [Concomitant]
  3. ACETYLSALICYLIC ACID [Concomitant]
     Dosage: UNK UNK, QD
  4. FOLIC ACID [Concomitant]
     Dosage: 3 MG, QD
  5. PREDNISONE [Concomitant]
     Dosage: 5 MG, QD
  6. ENOXAPARIN [Concomitant]
     Dosage: 40 MG, UNK
  7. CALCIUM CARBONATE [Concomitant]
     Dosage: 1500 MG, UNK
  8. IMMUNOGLOBULIN HUMAN ANTI-RH [Concomitant]

REACTIONS (15)
  - Foetal growth restriction [Unknown]
  - Premature delivery [Recovered/Resolved]
  - Failed induction of labour [Unknown]
  - Joint effusion [Unknown]
  - Constipation [Unknown]
  - Haemorrhoids [Unknown]
  - Sciatica [Unknown]
  - Muscle spasms [Unknown]
  - Pelvic pain [Unknown]
  - Vomiting in pregnancy [Unknown]
  - Diarrhoea [Unknown]
  - Nausea [Unknown]
  - Pain [Unknown]
  - Headache [Unknown]
  - Dyspepsia [Unknown]
